FAERS Safety Report 7343076-4 (Version None)
Quarter: 2011Q1

REPORT INFORMATION
  Report Type: 
  Country: None (occurrence: None)
  Receive Date: 20110302
  Receipt Date: 20110223
  Transmission Date: 20110831
  Serious: Yes (Hospitalization)
  Sender: FDA-Public Use
  Company Number: 2011MA001714

PATIENT
  Age: 53 Year
  Sex: Female

DRUGS (3)
  1. ALPRAZOLAM [Suspect]
     Dosage: PO
     Route: 048
  2. CITALOPRAM HYDROBROMIDE [Suspect]
     Dosage: PO
     Route: 048
  3. VERAPAMIL HYDROCHLORIDE [Suspect]
     Dosage: PO
     Route: 048

REACTIONS (6)
  - TORSADE DE POINTES [None]
  - MENTAL STATUS CHANGES [None]
  - ELECTROCARDIOGRAM QT PROLONGED [None]
  - CONVULSION [None]
  - BRADYCARDIA [None]
  - MULTIPLE DRUG OVERDOSE [None]
